FAERS Safety Report 9254587 (Version 1)
Quarter: 2013Q2

REPORT INFORMATION
  Report Type: Spontaneous
  Country: US (occurrence: None)
  Receive Date: 20130422
  Receipt Date: 20130422
  Transmission Date: 20140414
  Serious: Yes (Other)
  Sender: FDA-Public Use
  Company Number: None

PATIENT
  Age: 51 Year
  Sex: Female

DRUGS (3)
  1. METHYLPHENIDATE [Suspect]
     Dosage: 1
     Route: 048
  2. PAXIL [Concomitant]
  3. LISINOPRIL-HYDROCHLOROTHIAZIDE [Concomitant]

REACTIONS (6)
  - Eructation [None]
  - Abdominal pain upper [None]
  - Chest pain [None]
  - Blood pressure increased [None]
  - Diabetes mellitus [None]
  - Blood cholesterol increased [None]
